FAERS Safety Report 14856519 (Version 2)
Quarter: 2019Q2

REPORT INFORMATION
  Report Type: Spontaneous
  Country: US (occurrence: US)
  Receive Date: 20180507
  Receipt Date: 20190509
  Transmission Date: 20190711
  Serious: No
  Sender: FDA-Public Use
  Company Number: US-ROCHE-2067941

PATIENT
  Sex: Male

DRUGS (1)
  1. ESBRIET [Suspect]
     Active Substance: PIRFENIDONE
     Indication: IDIOPATHIC PULMONARY FIBROSIS
     Dosage: ONGOING: YES
     Route: 048
     Dates: start: 20171208

REACTIONS (9)
  - Chapped lips [Unknown]
  - Weight decreased [Unknown]
  - Myalgia [Unknown]
  - Lip dry [Unknown]
  - Nausea [Unknown]
  - Dry mouth [Unknown]
  - Angular cheilitis [Unknown]
  - Fatigue [Unknown]
  - Decreased appetite [Unknown]
